FAERS Safety Report 5309605-7 (Version None)
Quarter: 2007Q2

REPORT INFORMATION
  Report Type: 
  Country: None (occurrence: None)
  Receive Date: 20070427
  Receipt Date: 20070419
  Transmission Date: 20071010
  Serious: Yes (Other)
  Sender: FDA-Public Use
  Company Number: JP-ROCHE-486844

PATIENT
  Age: 9 Year
  Sex: Male
  Weight: 44 kg

DRUGS (9)
  1. TAMIFLU [Suspect]
     Route: 048
     Dates: start: 20050217, end: 20050217
  2. TAMIFLU [Suspect]
     Route: 048
     Dates: start: 20050218, end: 20050221
  3. TAMIFLU [Suspect]
     Route: 048
     Dates: start: 20050222, end: 20050222
  4. TAMIFLU [Suspect]
     Route: 048
     Dates: start: 20070221, end: 20070221
  5. TAMIFLU [Suspect]
     Route: 048
     Dates: start: 20070222, end: 20070225
  6. TAMIFLU [Suspect]
     Route: 048
     Dates: start: 20070226
  7. BAYNAS [Concomitant]
     Route: 048
  8. FLAVERIC [Concomitant]
     Route: 048
     Dates: start: 20070221, end: 20070225
  9. NIPOLAZIN [Concomitant]
     Dosage: DOSE FORM: FINE GRANULE
     Route: 048
     Dates: start: 20070221, end: 20070225

REACTIONS (1)
  - ABNORMAL BEHAVIOUR [None]
